FAERS Safety Report 25595844 (Version 5)
Quarter: 2025Q3

REPORT INFORMATION
  Report Type: Report from Study
  Country: US (occurrence: US)
  Receive Date: 20250723
  Receipt Date: 20250904
  Transmission Date: 20251021
  Serious: Yes (Hospitalization, Other)
  Sender: UCB
  Company Number: US-UCBSA-2025002664

PATIENT
  Age: 25 Year
  Sex: Female
  Weight: 55.79 kg

DRUGS (11)
  1. FINTEPLA [Suspect]
     Active Substance: FENFLURAMINE
     Indication: Lennox-Gastaut syndrome
     Dosage: 5.9 MILLIGRAM, 2X/DAY (BID)
     Dates: start: 20230811
  2. FINTEPLA [Suspect]
     Active Substance: FENFLURAMINE
     Dates: start: 20230918
  3. FINTEPLA [Suspect]
     Active Substance: FENFLURAMINE
     Dosage: 5.9 MILLILITER, 2X/DAY (BID)
     Route: 048
     Dates: start: 20230921
  4. FINTEPLA [Suspect]
     Active Substance: FENFLURAMINE
     Dosage: 5.9 MILLILITER, 2X/DAY (BID)
  5. FINTEPLA [Suspect]
     Active Substance: FENFLURAMINE
     Dosage: 5.9 MILLILITER, 2X/DAY (BID)
  6. FINTEPLA [Suspect]
     Active Substance: FENFLURAMINE
     Dosage: 5.9 MILLILITER, 2X/DAY (BID)
     Route: 048
     Dates: start: 20231108
  7. KEPPRA [Concomitant]
     Active Substance: LEVETIRACETAM
     Indication: Seizure
     Dosage: 1500 MILLIGRAM, 3X/DAY (TID)
     Dates: start: 2020
  8. LACOSAMIDE [Concomitant]
     Active Substance: LACOSAMIDE
     Indication: Seizure
     Dosage: 200 MILLIGRAM, 3X/DAY (TID)
     Dates: start: 2020
  9. CLONAZEPAM [Concomitant]
     Active Substance: CLONAZEPAM
     Indication: Seizure
     Dosage: 200 MILLIGRAM, 3X/DAY (TID)
  10. XCOPRI [Concomitant]
     Active Substance: CENOBAMATE
     Indication: Seizure
  11. XCOPRI [Concomitant]
     Active Substance: CENOBAMATE
     Dosage: 400 MILLIGRAM, ONCE DAILY (QD)
     Dates: start: 202506

REACTIONS (4)
  - Pneumonia [Recovered/Resolved]
  - Seizure [Recovered/Resolved]
  - Tricuspid valve incompetence [Unknown]
  - Illness [Unknown]

NARRATIVE: CASE EVENT DATE: 20250410
